FAERS Safety Report 21786529 (Version 1)
Quarter: 2022Q4

REPORT INFORMATION
  Report Type: Spontaneous
  Country: CA (occurrence: CA)
  Receive Date: 20221228
  Receipt Date: 20221228
  Transmission Date: 20230113
  Serious: Yes (Other)
  Sender: FDA-Public Use
  Company Number: CA-002147023-NVSC2022CA296372

PATIENT
  Age: 44 Year
  Sex: Female

DRUGS (3)
  1. METHOTREXATE [Suspect]
     Active Substance: METHOTREXATE
     Indication: Product used for unknown indication
     Dosage: 25 MG, QW (1 EVERY 1 WEEKS)
     Route: 058
  2. SULFASALAZINE [Concomitant]
     Active Substance: SULFASALAZINE
     Indication: Product used for unknown indication
     Dosage: 1000 MG, BID (2 EVERY 1 DAYS)
     Route: 065
  3. SULFASALAZINE [Concomitant]
     Active Substance: SULFASALAZINE
     Dosage: 500 MG, BID (2 EVERY 1 DAYS)
     Route: 065

REACTIONS (6)
  - Bone erosion [Unknown]
  - Decreased appetite [Unknown]
  - Nausea [Unknown]
  - Synovitis [Unknown]
  - Drug intolerance [Unknown]
  - Off label use [Unknown]
